FAERS Safety Report 17370591 (Version 2)
Quarter: 2020Q1

REPORT INFORMATION
  Report Type: Spontaneous
  Country: DE (occurrence: DE)
  Receive Date: 20200205
  Receipt Date: 20200303
  Transmission Date: 20200409
  Serious: Yes (Hospitalization)
  Sender: FDA-Public Use
  Company Number: DE-ARBOR PHARMACEUTICALS, LLC-DE-2020ARB000097

PATIENT
  Age: 46 Year
  Sex: Male

DRUGS (1)
  1. TRIPTODUR [Suspect]
     Active Substance: TRIPTORELIN
     Indication: PARAPHILIA
     Dosage: 11.25 MG, 1 IN 1 M
     Route: 030
     Dates: start: 2010

REACTIONS (3)
  - Hydronephrosis [Not Recovered/Not Resolved]
  - Off label use [Unknown]
  - Ureterolithiasis [Not Recovered/Not Resolved]

NARRATIVE: CASE EVENT DATE: 2010
